FAERS Safety Report 9901941 (Version 2)
Quarter: 2014Q1

REPORT INFORMATION
  Report Type: Spontaneous
  Country: US (occurrence: US)
  Receive Date: 20140217
  Receipt Date: 20140217
  Transmission Date: 20141002
  Serious: No
  Sender: FDA-Public Use
  Company Number: US-GILEAD-2011-0045910

PATIENT
  Age: 47 Year
  Sex: Female

DRUGS (2)
  1. LETAIRIS [Suspect]
     Indication: PULMONARY HYPERTENSION
     Dosage: 5 MG, UNK
     Route: 048
     Dates: start: 20111012, end: 20111019
  2. LETAIRIS [Suspect]
     Indication: LIVER DISORDER

REACTIONS (4)
  - Migraine [Unknown]
  - Nausea [Unknown]
  - Swelling face [Unknown]
  - Flushing [Unknown]
